FAERS Safety Report 7650170-7 (Version None)
Quarter: 2011Q3

REPORT INFORMATION
  Report Type: 
  Country: None (occurrence: None)
  Receive Date: 20110802
  Receipt Date: 20110719
  Transmission Date: 20111222
  Serious: Yes (Other)
  Sender: FDA-Public Use
  Company Number: US-ROCHE-757381

PATIENT
  Sex: Male
  Weight: 136.1 kg

DRUGS (3)
  1. ACCUTANE [Suspect]
     Route: 048
     Dates: start: 19990801, end: 19991001
  2. ACCUTANE [Suspect]
     Indication: ACNE
     Route: 048
     Dates: start: 19941201, end: 19950601
  3. ACCUTANE [Suspect]
     Route: 048
     Dates: start: 19980101, end: 19990101

REACTIONS (10)
  - PROCTITIS ULCERATIVE [None]
  - RHEUMATOID ARTHRITIS [None]
  - LIP DRY [None]
  - GASTROINTESTINAL INJURY [None]
  - CROHN'S DISEASE [None]
  - INFLAMMATORY BOWEL DISEASE [None]
  - BLOOD CHOLESTEROL INCREASED [None]
  - INTESTINAL OBSTRUCTION [None]
  - COLONIC POLYP [None]
  - BLOOD TRIGLYCERIDES INCREASED [None]
